FAERS Safety Report 24798451 (Version 1)
Quarter: 2025Q1

REPORT INFORMATION
  Report Type: Spontaneous
  Country: IQ (occurrence: IQ)
  Receive Date: 20250102
  Receipt Date: 20250102
  Transmission Date: 20250408
  Serious: Yes (Hospitalization)
  Sender: STRIDES
  Company Number: IQ-STRIDES ARCOLAB LIMITED-2024SP017261

PATIENT
  Age: 65 Year
  Sex: Female

DRUGS (7)
  1. GABAPENTIN [Interacting]
     Active Substance: GABAPENTIN
     Indication: Pain management
     Route: 065
  2. GABAPENTIN [Interacting]
     Active Substance: GABAPENTIN
     Route: 065
  3. DEFIBROTIDE SODIUM [Interacting]
     Active Substance: DEFIBROTIDE SODIUM
     Indication: Pain management
     Route: 065
  4. DEFIBROTIDE SODIUM [Interacting]
     Active Substance: DEFIBROTIDE SODIUM
     Route: 065
  5. METFORMIN [Concomitant]
     Active Substance: METFORMIN HYDROCHLORIDE
     Indication: Type 2 diabetes mellitus
     Route: 065
  6. PROPRANOLOL [Concomitant]
     Active Substance: PROPRANOLOL HYDROCHLORIDE
     Indication: Angina pectoris
     Route: 065
  7. PROPRANOLOL [Concomitant]
     Active Substance: PROPRANOLOL HYDROCHLORIDE
     Indication: Hypertension

REACTIONS (3)
  - Drug interaction [Unknown]
  - Hyperglycaemia [Unknown]
  - Off label use [Unknown]
